FAERS Safety Report 17016755 (Version 2)
Quarter: 2020Q1

REPORT INFORMATION
  Report Type: Report from Study
  Country: IT (occurrence: IT)
  Receive Date: 20191111
  Receipt Date: 20200117
  Transmission Date: 20200409
  Serious: Yes (Death, Disabling, Other)
  Sender: FDA-Public Use
  Company Number: IT-PUMA BIOTECHNOLOGY, LTD.-2019IT011151

PATIENT

DRUGS (3)
  1. NERLYNX [Suspect]
     Active Substance: NERATINIB
     Indication: BREAST CANCER
     Dosage: 240 MG, 6 TABLETS, DAILY
     Route: 048
     Dates: start: 20190812, end: 20191003
  2. SOLDESAM [Concomitant]
     Active Substance: DEXAMETHASONE
     Indication: INFLAMMATION
     Dosage: 30 DROPS, DAILY
     Route: 065
     Dates: start: 20190709
  3. OMEPRAZOLE. [Concomitant]
     Active Substance: OMEPRAZOLE
     Indication: GASTRITIS PROPHYLAXIS
     Dosage: 20 MG, DAILY
     Route: 065
     Dates: start: 20180614

REACTIONS (9)
  - Lip disorder [Unknown]
  - Paresis [Unknown]
  - Nausea [Unknown]
  - Drug ineffective [Unknown]
  - Metastases to meninges [Unknown]
  - Eyelid ptosis [Unknown]
  - Death [Fatal]
  - Gait disturbance [Unknown]
  - Headache [Unknown]

NARRATIVE: CASE EVENT DATE: 20190927
